FAERS Safety Report 20935027 (Version 1)
Quarter: 2022Q2

REPORT INFORMATION
  Report Type: Spontaneous
  Country: FR (occurrence: FR)
  Receive Date: 20220608
  Receipt Date: 20220608
  Transmission Date: 20220721
  Serious: Yes (Other)
  Sender: FDA-Public Use
  Company Number: FR-PRINSTON PHARMACEUTICAL INC.-2022PRN00195

PATIENT
  Age: 29 Year
  Sex: Male
  Weight: 99 kg

DRUGS (19)
  1. DIVALPROEX SODIUM [Suspect]
     Active Substance: DIVALPROEX SODIUM
     Indication: Schizoaffective disorder
     Dosage: 2000 MG, 1X/DAY
     Route: 065
  2. DIVALPROEX SODIUM [Suspect]
     Active Substance: DIVALPROEX SODIUM
     Dosage: 2500 MG 1X/DAY
     Route: 065
  3. DIVALPROEX SODIUM [Suspect]
     Active Substance: DIVALPROEX SODIUM
     Dosage: 2000 MG 1X/DAY ON DAY 4
     Route: 065
  4. DIVALPROEX SODIUM [Suspect]
     Active Substance: DIVALPROEX SODIUM
     Dosage: 1500 MG 1X/DAY ON DAY 6
     Route: 065
  5. DIVALPROEX SODIUM [Suspect]
     Active Substance: DIVALPROEX SODIUM
     Dosage: 2500 MG 1X/DAY ON DAY 12
     Route: 065
  6. DIVALPROEX SODIUM [Suspect]
     Active Substance: DIVALPROEX SODIUM
     Dosage: 2000 MG ON DAY 0
     Route: 065
  7. DIVALPROEX SODIUM [Suspect]
     Active Substance: DIVALPROEX SODIUM
     Dosage: 1500 MG ON DAY 3
     Route: 065
  8. LITHIUM [Suspect]
     Active Substance: LITHIUM
     Indication: Schizoaffective disorder
     Dosage: 400 MG, 1X/DAY
     Route: 065
  9. LITHIUM [Suspect]
     Active Substance: LITHIUM
     Dosage: 400 MG 1X/DAY
     Route: 065
  10. CANNABIS SATIVA SUBSP. INDICA TOP [Suspect]
     Active Substance: CANNABIS SATIVA SUBSP. INDICA TOP
     Route: 065
  11. PALIPERIDONE PALMITATE ER [Concomitant]
     Indication: Schizoaffective disorder
     Dosage: 100 MG, 1X/MONTH
     Route: 065
  12. PALIPERIDONE PALMITATE ER [Concomitant]
     Dosage: 100 MG/28 DAYS
     Route: 065
  13. PALIPERIDONE PALMITATE ER [Concomitant]
     Dosage: 150 MG/28 DAYS
     Route: 065
  14. RISPERIDONE [Concomitant]
     Active Substance: RISPERIDONE
     Indication: Schizoaffective disorder
     Dosage: 4 MG, 1X/DAY
     Route: 065
  15. DIAZEPAM [Concomitant]
     Active Substance: DIAZEPAM
     Indication: Schizoaffective disorder
     Dosage: 20 MG, 1X/DAY
     Route: 065
  16. DIAZEPAM [Concomitant]
     Active Substance: DIAZEPAM
     Dosage: 5 MG 1X/DAY
     Route: 065
  17. DIAZEPAM [Concomitant]
     Active Substance: DIAZEPAM
     Dosage: 3 MG 1X/DAY
     Route: 065
  18. LEVOMEPROMAZINE [Concomitant]
     Active Substance: LEVOMEPROMAZINE
     Indication: Schizoaffective disorder
     Dosage: 300 MG, 1X/DAY
     Route: 065
  19. LEVOMEPROMAZINE [Concomitant]
     Active Substance: LEVOMEPROMAZINE
     Dosage: 55 MG 1X/DAY
     Route: 065

REACTIONS (2)
  - Drug interaction [Unknown]
  - Hyperammonaemic encephalopathy [Recovered/Resolved]
